FAERS Safety Report 5462964-7 (Version None)
Quarter: 2007Q3

REPORT INFORMATION
  Report Type: 
  Country: None (occurrence: None)
  Receive Date: 20070920
  Receipt Date: 20070912
  Transmission Date: 20080115
  Serious: Yes (Life-Threatening)
  Sender: FDA-Public Use
  Company Number: JP-BAYER-200710584BYL

PATIENT
  Sex: Male
  Weight: 50 kg

DRUGS (3)
  1. CIPROXAN-I.V. [Suspect]
     Indication: PNEUMONIA
     Route: 042
     Dates: start: 20070817, end: 20070817
  2. ISCOTIN [Concomitant]
     Route: 048
     Dates: start: 20070817, end: 20070827
  3. RIFADIN [Concomitant]
     Route: 048
     Dates: start: 20070817, end: 20070827

REACTIONS (1)
  - BLOOD PRESSURE DECREASED [None]
